FAERS Safety Report 23246972 (Version 2)
Quarter: 2023Q4

REPORT INFORMATION
  Report Type: Report from Study
  Country: KR (occurrence: KR)
  Receive Date: 20231130
  Receipt Date: 20231208
  Transmission Date: 20240109
  Serious: Yes (Hospitalization)
  Sender: FDA-Public Use
  Company Number: KR-PFIZER INC-PV202300125805

PATIENT
  Age: 46 Year
  Sex: Female
  Weight: 61 kg

DRUGS (4)
  1. VIZIMPRO [Suspect]
     Active Substance: DACOMITINIB
     Indication: Non-small cell lung cancer
     Dosage: 45 MG, 1X/DAY
     Route: 048
     Dates: start: 20220621, end: 20220717
  2. VIZIMPRO [Suspect]
     Active Substance: DACOMITINIB
     Dosage: 30 MG, 1X/DAY
     Route: 048
     Dates: start: 20220718
  3. LOPAINE [Concomitant]
     Indication: Prophylaxis
     Dosage: UNK
     Route: 048
     Dates: start: 20220830
  4. ARTEMISIA ARGYI LEAF [Concomitant]
     Active Substance: ARTEMISIA ARGYI LEAF
     Indication: Prophylaxis
     Dosage: UNK
     Route: 048
     Dates: start: 20220121

REACTIONS (1)
  - Pleural effusion [Recovered/Resolved]

NARRATIVE: CASE EVENT DATE: 20220627
